FAERS Safety Report 20620645 (Version 1)
Quarter: 2022Q1

REPORT INFORMATION
  Report Type: Spontaneous
  Country: PL (occurrence: PL)
  Receive Date: 20220322
  Receipt Date: 20220322
  Transmission Date: 20220423
  Serious: Yes (Other)
  Sender: FDA-Public Use
  Company Number: PL-GILEAD-2022-0573790

PATIENT
  Age: 14 Year
  Sex: Female

DRUGS (2)
  1. AMBISOME [Suspect]
     Active Substance: AMPHOTERICIN B
     Indication: Pneumonia fungal
     Dosage: UNK UNK, UNKNOWN FREQ.
     Route: 065
  2. MYKOFUNGIN [Concomitant]
     Indication: Product used for unknown indication
     Dosage: UNK UNK, UNKNOWN FREQ.
     Route: 065

REACTIONS (7)
  - Bone marrow failure [Unknown]
  - Asymptomatic COVID-19 [Recovered/Resolved]
  - Hyperbilirubinaemia [Unknown]
  - Pyrexia [Unknown]
  - Pain [Unknown]
  - Joint swelling [Unknown]
  - Drug ineffective [Recovering/Resolving]
